FAERS Safety Report 8536557-9 (Version None)
Quarter: 2012Q3

REPORT INFORMATION
  Report Type: 
  Country: None (occurrence: None)
  Receive Date: 20120725
  Receipt Date: 20120723
  Transmission Date: 20120928
  Serious: Yes (Hospitalization)
  Sender: FDA-Public Use
  Company Number: IT-ROCHE-1091904

PATIENT
  Sex: Male

DRUGS (8)
  1. CRESTOR [Concomitant]
     Indication: DYSLIPIDAEMIA
  2. NIMESULIDE [Concomitant]
     Indication: ARTHRALGIA
  3. MICARDIS [Concomitant]
     Indication: HYPERTENSION
  4. CLONAZEPAM [Suspect]
     Indication: ESSENTIAL TREMOR
     Route: 048
     Dates: start: 20120706, end: 20120714
  5. PANTOPRAZOLE [Concomitant]
  6. LASIX [Concomitant]
     Indication: HYPERTENSION
  7. KETOROLAC TROMETHAMINE [Concomitant]
     Indication: ARTHRALGIA
  8. CLOPIDOGREL [Concomitant]
     Indication: CARDIOVASCULAR EVENT PROPHYLAXIS
     Dates: start: 20120706, end: 20120714

REACTIONS (2)
  - SYNCOPE [None]
  - SOPOR [None]
